FAERS Safety Report 12896157 (Version 1)
Quarter: 2016Q4

REPORT INFORMATION
  Report Type: Spontaneous
  Country: US (occurrence: US)
  Receive Date: 20161031
  Receipt Date: 20161031
  Transmission Date: 20170207
  Serious: No
  Sender: FDA-Public Use
  Company Number: US-JAZZ-2016-US-016025

PATIENT
  Sex: Female

DRUGS (41)
  1. KLOR-CON M10 [Concomitant]
     Active Substance: POTASSIUM CHLORIDE
  2. ACETAMINOPHEN + COD. PHOSP. [Concomitant]
     Active Substance: ACETAMINOPHEN\CODEINE PHOSPHATE
  3. BACTRIM DS [Concomitant]
     Active Substance: SULFAMETHOXAZOLE\TRIMETHOPRIM
  4. GUAIFENESIN. [Concomitant]
     Active Substance: GUAIFENESIN
  5. COENZYME Q10 [Concomitant]
     Active Substance: UBIDECARENONE
  6. PERCOCET [Concomitant]
     Active Substance: ACETAMINOPHEN\OXYCODONE HYDROCHLORIDE
  7. BACLOFEN. [Concomitant]
     Active Substance: BACLOFEN
  8. RIBOFLAVIN [Concomitant]
     Active Substance: RIBOFLAVIN
  9. VITAMIN E [Concomitant]
     Active Substance: .ALPHA.-TOCOPHEROL
  10. TUSSIONEX PENNKINETIC [Concomitant]
     Active Substance: CHLORPHENIRAMINE\HYDROCODONE
  11. ARMOUR THYROID [Concomitant]
     Active Substance: THYROID, PORCINE
  12. D-RIBOSE [Concomitant]
     Active Substance: DIETARY SUPPLEMENT
  13. DHEA [Concomitant]
     Active Substance: PRASTERONE
  14. FLUCONAZOLE. [Concomitant]
     Active Substance: FLUCONAZOLE
  15. PAMELOR [Concomitant]
     Active Substance: NORTRIPTYLINE HYDROCHLORIDE
  16. ESTER-C [Concomitant]
     Active Substance: CALCIUM\VITAMINS
  17. ASTELIN [Concomitant]
     Active Substance: AZELASTINE HYDROCHLORIDE
  18. BIOTIN [Concomitant]
     Active Substance: BIOTIN
  19. SINGULAIR [Concomitant]
     Active Substance: MONTELUKAST SODIUM
  20. XYREM [Suspect]
     Active Substance: SODIUM OXYBATE
     Dosage: 4.5 G, BID
     Route: 048
     Dates: start: 201208
  21. HYDROXYZINE HCL [Concomitant]
     Active Substance: HYDROXYZINE HYDROCHLORIDE
  22. PROBIOTIC [Concomitant]
     Active Substance: PROBIOTICS NOS
  23. CRESTOR [Concomitant]
     Active Substance: ROSUVASTATIN CALCIUM
  24. NYSTATIN. [Concomitant]
     Active Substance: NYSTATIN
  25. VITAMIN D2 [Concomitant]
     Active Substance: ERGOCALCIFEROL
  26. XYREM [Suspect]
     Active Substance: SODIUM OXYBATE
     Dosage: 4.5 G, BID
     Route: 048
     Dates: start: 200511, end: 200512
  27. XYREM [Suspect]
     Active Substance: SODIUM OXYBATE
     Dosage: 4.5 G, BID
     Route: 048
     Dates: start: 200607, end: 201010
  28. XYREM [Suspect]
     Active Substance: SODIUM OXYBATE
     Dosage: DOSE ADJUSTMENTS
     Route: 048
     Dates: start: 201010, end: 201207
  29. CEFTIN [Concomitant]
     Active Substance: CEFUROXIME AXETIL
  30. FLEXERIL [Concomitant]
     Active Substance: CYCLOBENZAPRINE HYDROCHLORIDE
  31. CALCIUM ANTACID [Concomitant]
     Active Substance: CALCIUM CARBONATE
  32. HYDROCHLOROTHIAZIDE. [Concomitant]
     Active Substance: HYDROCHLOROTHIAZIDE
  33. NIACINAMIDE [Concomitant]
     Active Substance: NIACINAMIDE
  34. VAGIFEM [Concomitant]
     Active Substance: ESTRADIOL
  35. ZYRTEC [Concomitant]
     Active Substance: CETIRIZINE HYDROCHLORIDE
  36. XYREM [Suspect]
     Active Substance: SODIUM OXYBATE
     Indication: FIBROMYALGIA
     Dosage: 3 G, BID
     Route: 048
     Dates: start: 200507, end: 200511
  37. LEVOFLOXACIN. [Concomitant]
     Active Substance: LEVOFLOXACIN
  38. QNASL [Concomitant]
     Active Substance: BECLOMETHASONE DIPROPIONATE
  39. VALIUM [Concomitant]
     Active Substance: DIAZEPAM
  40. HIZENTRA [Concomitant]
     Active Substance: HUMAN IMMUNOGLOBULIN G
  41. PROMETRIUM [Concomitant]
     Active Substance: PROGESTERONE

REACTIONS (1)
  - Laryngitis [Not Recovered/Not Resolved]
